FAERS Safety Report 5195151-0 (Version None)
Quarter: 2006Q4

REPORT INFORMATION
  Report Type: 
  Country: None (occurrence: None)
  Receive Date: 20061130
  Receipt Date: 20060619
  Transmission Date: 20070319
  Serious: Yes (Disabling)
  Sender: FDA-Public Use
  Company Number: WAES 0606USA03625

PATIENT
  Sex: Female

DRUGS (1)
  1. FOSAMAX [Suspect]
     Dosage: 70 MG/WKY/PO
     Route: 048

REACTIONS (2)
  - MUSCULOSKELETAL PAIN [None]
  - MYALGIA [None]
